FAERS Safety Report 7808046-8 (Version None)
Quarter: 2011Q4

REPORT INFORMATION
  Report Type: 
  Country: None (occurrence: None)
  Receive Date: 20111011
  Receipt Date: 20110930
  Transmission Date: 20120403
  Serious: Yes (Other)
  Sender: FDA-Public Use
  Company Number: US-US-EMD SERONO, INC.-7022207

PATIENT
  Sex: Female
  Weight: 68 kg

DRUGS (6)
  1. IBUPROFEN (ADVIL) [Concomitant]
     Indication: PREMEDICATION
  2. REBIF [Suspect]
     Indication: MULTIPLE SCLEROSIS
     Route: 058
     Dates: start: 20100621
  3. IBUPROFEN (ADVIL) [Concomitant]
     Indication: ADNEXA UTERI PAIN
  4. BENADRYL [Concomitant]
     Indication: PREMEDICATION
  5. VALIUM [Concomitant]
     Indication: VERTIGO
  6. AMBIEN [Concomitant]
     Indication: INSOMNIA

REACTIONS (11)
  - VERTIGO [None]
  - MUSCULOSKELETAL PAIN [None]
  - FATIGUE [None]
  - INJECTION SITE ERYTHEMA [None]
  - INJECTION SITE PAIN [None]
  - MULTIPLE SCLEROSIS RELAPSE [None]
  - FALL [None]
  - HEADACHE [None]
  - HEPATIC ENZYME INCREASED [None]
  - OVARIAN CYST [None]
  - ENDOMETRIOSIS [None]
